FAERS Safety Report 22238041 (Version 2)
Quarter: 2023Q2

REPORT INFORMATION
  Report Type: Spontaneous
  Country: US (occurrence: None)
  Receive Date: 20230421
  Receipt Date: 20230511
  Transmission Date: 20230721
  Serious: No
  Sender: FDA-Public Use
  Company Number: 2023A093046

PATIENT
  Age: 60 Year
  Sex: Male

DRUGS (1)
  1. PRILOSEC OTC [Suspect]
     Active Substance: OMEPRAZOLE MAGNESIUM
     Dosage: UNK CAPSUL, 2 /DAY
     Route: 048
     Dates: end: 20230318

REACTIONS (5)
  - Bone loss [Not Recovered/Not Resolved]
  - Nausea [Unknown]
  - Chills [Unknown]
  - Diarrhoea [Unknown]
  - Hyperchlorhydria [Unknown]

NARRATIVE: CASE EVENT DATE: 20230309
